FAERS Safety Report 10512745 (Version 2)
Quarter: 2014Q4

REPORT INFORMATION
  Report Type: Spontaneous
  Country: CH (occurrence: CH)
  Receive Date: 20141013
  Receipt Date: 20141013
  Transmission Date: 20150528
  Serious: Yes (Death)
  Sender: FDA-Public Use
  Company Number: CH-ROCHE-1456015

PATIENT
  Age: 43 Year
  Sex: Female

DRUGS (4)
  1. ZELBORAF [Suspect]
     Active Substance: VEMURAFENIB
     Indication: METASTATIC MALIGNANT MELANOMA
     Route: 048
     Dates: start: 201309
  2. ZELBORAF [Suspect]
     Active Substance: VEMURAFENIB
     Route: 048
     Dates: start: 20130923, end: 20131020
  3. ZELBORAF [Suspect]
     Active Substance: VEMURAFENIB
     Route: 048
     Dates: start: 20140107
  4. ZELBORAF [Suspect]
     Active Substance: VEMURAFENIB
     Dosage: MO-FR
     Route: 048
     Dates: start: 20131030, end: 20140107

REACTIONS (4)
  - Dysgeusia [Unknown]
  - Disease progression [Fatal]
  - Dermal cyst [Unknown]
  - Solar dermatitis [Unknown]

NARRATIVE: CASE EVENT DATE: 201401
